FAERS Safety Report 10026696 (Version 1)
Quarter: 2014Q1

REPORT INFORMATION
  Report Type: Report from Study
  Country: US (occurrence: US)
  Receive Date: 20140321
  Receipt Date: 20140321
  Transmission Date: 20141002
  Serious: Yes (Other)
  Sender: FDA-Public Use
  Company Number: US-ROCHE-1362899

PATIENT
  Age: 15 Year
  Sex: Male
  Weight: 42.7 kg

DRUGS (5)
  1. NUTROPIN AQ [Suspect]
     Indication: GROWTH HORMONE DEFICIENCY
     Route: 058
     Dates: end: 20130813
  2. NUTROPIN AQ [Suspect]
     Route: 058
     Dates: start: 20130813, end: 20131209
  3. NUTROPIN AQ [Suspect]
     Route: 058
     Dates: start: 20131209
  4. VYVANSE [Concomitant]
     Route: 048
  5. SERTRALINE [Concomitant]
     Dosage: QHS
     Route: 048

REACTIONS (5)
  - Foot fracture [Unknown]
  - Animal bite [Unknown]
  - Delayed puberty [Unknown]
  - Attention deficit/hyperactivity disorder [Unknown]
  - Tooth repair [Unknown]
